FAERS Safety Report 8010174-1 (Version None)
Quarter: 2011Q4

REPORT INFORMATION
  Report Type: 
  Country: None (occurrence: None)
  Receive Date: 20111228
  Receipt Date: 20111216
  Transmission Date: 20120403
  Serious: Yes (Death)
  Sender: FDA-Public Use
  Company Number: US-PFIZER INC-2011308972

PATIENT
  Age: 37 Year
  Sex: Female

DRUGS (7)
  1. LAMOTRIGINE [Suspect]
  2. CLOZAPINE [Suspect]
  3. ATENOLOL [Suspect]
     Route: 048
  4. CLINDAMYCIN HCL [Suspect]
     Route: 048
  5. GLYBURIDE [Suspect]
  6. CYCLOBENZAPRINE HCL [Suspect]
  7. CARBAMAZEPINE [Suspect]

REACTIONS (3)
  - CARDIAC ARREST [None]
  - COMPLETED SUICIDE [None]
  - RESPIRATORY ARREST [None]
